FAERS Safety Report 24111865 (Version 1)
Quarter: 2024Q3

REPORT INFORMATION
  Report Type: Spontaneous
  Country: CA (occurrence: CA)
  Receive Date: 20240718
  Receipt Date: 20240718
  Transmission Date: 20241017
  Serious: Yes (Death, Other)
  Sender: BRISTOL MYERS SQUIBB
  Company Number: CA-BRISTOL-MYERS SQUIBB COMPANY-2024-114508

PATIENT
  Age: 7 Decade
  Sex: Female

DRUGS (7)
  1. OPDIVO [Suspect]
     Active Substance: NIVOLUMAB
     Indication: Non-small cell lung cancer metastatic
     Dates: start: 20210903, end: 2022
  2. OPDIVO [Suspect]
     Active Substance: NIVOLUMAB
     Dates: start: 2022
  3. YERVOY [Suspect]
     Active Substance: IPILIMUMAB
     Indication: Non-small cell lung cancer metastatic
     Dates: start: 20210903, end: 2022
  4. PEMETREXED [Concomitant]
     Active Substance: PEMETREXED
     Indication: Non-small cell lung cancer metastatic
     Dates: start: 20210903
  5. PEMETREXED [Concomitant]
     Active Substance: PEMETREXED
     Dates: start: 202301
  6. CISPLATIN [Concomitant]
     Active Substance: CISPLATIN
     Indication: Non-small cell lung cancer metastatic
     Dates: start: 20210903
  7. CISPLATIN [Concomitant]
     Active Substance: CISPLATIN
     Dates: start: 202301

REACTIONS (1)
  - Death [Fatal]

NARRATIVE: CASE EVENT DATE: 20230607
